FAERS Safety Report 5756967-2 (Version None)
Quarter: 2008Q2

REPORT INFORMATION
  Report Type: 
  Country: None (occurrence: None)
  Receive Date: 20080603
  Receipt Date: 20080522
  Transmission Date: 20081010
  Serious: Yes (Other)
  Sender: FDA-Public Use
  Company Number: TR-BAXTER-2008BH005382

PATIENT
  Age: 60 Year
  Sex: Male
  Weight: 92 kg

DRUGS (1)
  1. DEXTROSE 5% [Suspect]
     Indication: HAEMODIALYSIS
     Route: 042
     Dates: start: 20080505, end: 20080505

REACTIONS (1)
  - CHEST PAIN [None]
